FAERS Safety Report 5938498-X (Version None)
Quarter: 2008Q4

REPORT INFORMATION
  Report Type: 
  Country: None (occurrence: None)
  Receive Date: 20081103
  Receipt Date: 20081030
  Transmission Date: 20090506
  Serious: Yes (Hospitalization)
  Sender: FDA-Public Use
  Company Number: IT-RB-005739-08

PATIENT
  Age: 83 Year
  Sex: Male

DRUGS (1)
  1. TEMGESIC [Suspect]
     Dosage: UNKOWN DOSE AND FREQUENCY
     Route: 065

REACTIONS (5)
  - DYSPNOEA [None]
  - HYPERHIDROSIS [None]
  - NAUSEA [None]
  - VERTIGO [None]
  - VOMITING [None]
